FAERS Safety Report 25369582 (Version 1)
Quarter: 2025Q2

REPORT INFORMATION
  Report Type: Spontaneous
  Country: US (occurrence: None)
  Receive Date: 20250528
  Receipt Date: 20250528
  Transmission Date: 20250717
  Serious: No
  Sender: FDA-CTU
  Company Number: None

PATIENT
  Age: 38 Year
  Sex: Male
  Weight: 65.25 kg

DRUGS (7)
  1. CETIRIZINE HYDROCHLORIDE [Suspect]
     Active Substance: CETIRIZINE HYDROCHLORIDE
     Indication: Seasonal allergy
     Dosage: OTHER QUANTITY : 1 TABLET(S);?FREQUENCY : TWICE A DAY;?
     Route: 048
  2. CETIRIZINE HYDROCHLORIDE [Suspect]
     Active Substance: CETIRIZINE HYDROCHLORIDE
     Indication: Allergy to animal
  3. LAMOTRIGINE [Concomitant]
     Active Substance: LAMOTRIGINE
  4. ATENOLOL [Concomitant]
     Active Substance: ATENOLOL
  5. AMLODIPINE BESYLATE [Concomitant]
     Active Substance: AMLODIPINE BESYLATE
  6. Ritual Daily Vitamin [Concomitant]
  7. Nutrafol for Men Zinc [Concomitant]

REACTIONS (2)
  - Pruritus [None]
  - Withdrawal syndrome [None]

NARRATIVE: CASE EVENT DATE: 20211015
